FAERS Safety Report 15320089 (Version 2)
Quarter: 2018Q3

REPORT INFORMATION
  Report Type: Spontaneous
  Country: US (occurrence: US)
  Receive Date: 20180827
  Receipt Date: 20180903
  Transmission Date: 20181010
  Serious: No
  Sender: FDA-Public Use
  Company Number: US-PFIZER INC-2018340451

PATIENT
  Age: 16 Year
  Sex: Female

DRUGS (2)
  1. GENOTROPIN [Suspect]
     Active Substance: SOMATROPIN
     Dosage: 1.7 MG, DAILY (IN TO THE SKIN)
     Dates: start: 20130327
  2. GENOTROPIN [Suspect]
     Active Substance: SOMATROPIN
     Dosage: 1.8 MG, DAILY
     Dates: start: 20120828

REACTIONS (6)
  - Drug prescribing error [Unknown]
  - Blood creatine decreased [Unknown]
  - Insulin-like growth factor increased [Unknown]
  - Blood thyroid stimulating hormone increased [Unknown]
  - Vitamin D decreased [Unknown]
  - Blood alkaline phosphatase increased [Unknown]

NARRATIVE: CASE EVENT DATE: 20170807
